FAERS Safety Report 10008760 (Version 1)
Quarter: 2014Q1

REPORT INFORMATION
  Report Type: Spontaneous
  Country: US (occurrence: US)
  Receive Date: 20140312
  Receipt Date: 20140312
  Transmission Date: 20141002
  Serious: No
  Sender: FDA-Public Use
  Company Number: US-INCYTE CORPORATION-2012IN000652

PATIENT
  Age: 64 Year
  Sex: Male

DRUGS (8)
  1. JAKAFI [Suspect]
     Indication: LEUKAEMIA
     Dosage: 15 MG, BID
     Route: 048
     Dates: start: 2012
  2. METFORMIN [Concomitant]
  3. JANUVIA [Concomitant]
  4. PRAVASTATINE [Concomitant]
  5. ASPIRIN [Concomitant]
     Dosage: 81 MG, UNK
     Route: 048
  6. VITAMIN C [Concomitant]
     Indication: SUPPLEMENTATION THERAPY
  7. VITAMIN B 12 [Concomitant]
     Indication: SUPPLEMENTATION THERAPY
  8. VITAMIN E [Concomitant]
     Indication: SUPPLEMENTATION THERAPY

REACTIONS (1)
  - Nail discolouration [Unknown]
